FAERS Safety Report 22020831 (Version 1)
Quarter: 2023Q1

REPORT INFORMATION
  Report Type: Spontaneous
  Country: JP (occurrence: JP)
  Receive Date: 20230222
  Receipt Date: 20230222
  Transmission Date: 20230417
  Serious: Yes (Other)
  Sender: FDA-Public Use
  Company Number: JP-DSJP-DSJ-2023-106652

PATIENT

DRUGS (2)
  1. EDOXABAN TOSYLATE [Suspect]
     Active Substance: EDOXABAN TOSYLATE
     Indication: Product used for unknown indication
     Dosage: 60 MG, QD
     Route: 048
     Dates: start: 20150103, end: 20150519
  2. EDOXABAN TOSYLATE [Suspect]
     Active Substance: EDOXABAN TOSYLATE
     Dosage: 60 MG, QD
     Route: 048
     Dates: start: 20150901

REACTIONS (5)
  - Seizure [Unknown]
  - Superior sagittal sinus thrombosis [Unknown]
  - Transverse sinus thrombosis [Unknown]
  - Cardiac tamponade [Unknown]
  - Aortic dissection [Unknown]

NARRATIVE: CASE EVENT DATE: 20150815
